FAERS Safety Report 9483929 (Version 3)
Quarter: 2013Q4

REPORT INFORMATION
  Report Type: Report from Study
  Country: CA (occurrence: CA)
  Receive Date: 20130828
  Receipt Date: 20131111
  Transmission Date: 20140711
  Serious: Yes (Other)
  Sender: FDA-Public Use
  Company Number: PHHY2013CA093439

PATIENT
  Sex: Female

DRUGS (25)
  1. ACLASTA [Suspect]
     Indication: OSTEOPOROSIS
     Dosage: 5 MG/100ML, ANNUALLY
     Route: 042
     Dates: start: 20081014
  2. ACLASTA [Suspect]
     Dosage: 5 MG/100ML, ANNUALLY
     Route: 042
     Dates: start: 20091021
  3. ACLASTA [Suspect]
     Dosage: 5 MG/100ML, ANNUALLY
     Route: 042
     Dates: start: 20101019
  4. ACLASTA [Suspect]
     Dosage: 5 MG/100ML, ANNUALLY
     Route: 042
     Dates: start: 20111018
  5. ACLASTA [Suspect]
     Dosage: 5 MG/100ML, ANNUALLY
     Route: 042
     Dates: start: 20121015
  6. ACLASTA [Suspect]
     Dosage: 5 MG/100ML, ANNUALLY
     Route: 042
     Dates: start: 20131105
  7. CALCIUM CARBONATE [Concomitant]
     Dosage: UNK UKN, UNK
     Dates: start: 20080123
  8. VITALUX [Concomitant]
     Dosage: 1 UKN, BID
     Dates: start: 20070914
  9. TRAZODONE HCL [Concomitant]
     Dosage: 1 TABLET (50MG), EVERY EVENING
     Route: 048
     Dates: start: 20130723
  10. CITALOPRAM [Concomitant]
     Dosage: 1 TABLET (20MG) EVERY MORNING
     Dates: start: 20120104
  11. PANTOLOC [Concomitant]
     Dosage: 1 TABLET (40 MG), QD
     Dates: start: 20120104
  12. QUETIAPINE [Concomitant]
     Dosage: 200 MG, UNK
     Dates: start: 20130619
  13. QUETIAPINE [Concomitant]
     Dosage: 2 TABLETS OF 25MG BID
     Dates: start: 20130826
  14. REMINYL ER [Concomitant]
     Dosage: 1 CAPSULE (16MG) EVERY MORNING
     Dates: start: 20120104
  15. TYLENOL ARTHRITIS EXTENDED RELIEF [Concomitant]
     Dosage: 1 TABLET (650 MG), BID
     Dates: start: 20130619
  16. ADALAT XL [Concomitant]
     Dosage: 1 TABLET (30 MG), QD
     Dates: start: 20120104
  17. SLOW-K [Concomitant]
     Dosage: 1 TABLET (600 MG), QD
     Dates: start: 20120104
  18. CELEBREX [Concomitant]
     Dosage: 1 CAPSULE (200 MG), ONCE DAILY
     Dates: start: 20120104
  19. NOVO-FENOFIBRATE MICRONIZED [Concomitant]
     Dosage: 1 TABLET (200 MG), EVERY EVENING
     Route: 048
     Dates: start: 20120111
  20. VASERETIC [Concomitant]
     Dosage: 1 TABLET, QD
     Dates: start: 20120104
  21. GABAPENTIN [Concomitant]
     Dosage: 1 CAPSULE (300 MG), BID
     Route: 048
     Dates: start: 20131009
  22. CHOLECALCIFEROL [Concomitant]
     Dosage: 2 TABLETS (2000 UKN), QD
     Route: 048
     Dates: start: 20131105
  23. FLUVIRAL [Concomitant]
     Dosage: UNK UKN, UNK
     Dates: start: 20081023
  24. INFLUENZA VIRUS VACCINE [Concomitant]
     Dosage: UNK UKN, UNK
     Dates: start: 20091030
  25. PNEUMOVAX [Concomitant]
     Dosage: UNK UKN, UNK
     Dates: start: 20130619

REACTIONS (1)
  - Dementia Alzheimer^s type [Unknown]
